FAERS Safety Report 7397905-9 (Version None)
Quarter: 2011Q2

REPORT INFORMATION
  Report Type: 
  Country: None (occurrence: None)
  Receive Date: 20110406
  Receipt Date: 20110328
  Transmission Date: 20111010
  Serious: Yes (Hospitalization)
  Sender: FDA-Public Use
  Company Number: Z0008708A

PATIENT
  Sex: Female
  Weight: 56.2 kg

DRUGS (6)
  1. OFATUMUMAB [Suspect]
     Route: 042
     Dates: start: 20110112
  2. CYCLOPHOSPHAMIDE [Suspect]
     Route: 042
     Dates: start: 20110112
  3. PIPERACILLIN AND TAZOBACTAM [Concomitant]
     Dosage: 4.5G EVERY 3 DAYS
     Route: 042
     Dates: start: 20110328
  4. FLUDARABINE [Suspect]
     Route: 042
     Dates: start: 20110112
  5. CHLORHEXIDINE MOUTH WASH [Concomitant]
     Dosage: 10ML AS REQUIRED
     Route: 048
     Dates: start: 20110328
  6. SALINE 0.9% [Concomitant]
     Indication: NEUTROPENIC SEPSIS
     Dosage: 1L SINGLE DOSE
     Route: 042
     Dates: start: 20110328, end: 20110328

REACTIONS (1)
  - NEUTROPENIC SEPSIS [None]
